FAERS Safety Report 7522000-5 (Version None)
Quarter: 2011Q2

REPORT INFORMATION
  Report Type: 
  Country: None (occurrence: None)
  Receive Date: 20110603
  Receipt Date: 20110524
  Transmission Date: 20111010
  Serious: Yes (Death)
  Sender: FDA-Public Use
  Company Number: US-CELGENEUS-163-21880-11053173

PATIENT
  Age: 63 Year
  Sex: Female

DRUGS (9)
  1. REVLIMID [Suspect]
     Indication: MULTIPLE MYELOMA
     Dosage: 25 MILLIGRAM
     Route: 048
     Dates: start: 20100201, end: 20100801
  2. DEXAMETHASONE [Concomitant]
     Route: 065
  3. LACTULOSE [Concomitant]
     Route: 065
  4. MORPHINE SULFATE [Concomitant]
     Route: 065
  5. EPOETIN [Concomitant]
     Route: 065
  6. METOPROLOL TARTRATE [Concomitant]
     Route: 065
  7. POTASSIUM CHLORIDE [Concomitant]
     Route: 065
  8. VELCADE [Concomitant]
     Route: 065
     Dates: start: 20100801, end: 20110101
  9. AMLODIPINE [Concomitant]
     Route: 065

REACTIONS (1)
  - DEATH [None]
